FAERS Safety Report 4699268-6 (Version None)
Quarter: 2005Q2

REPORT INFORMATION
  Report Type: 
  Country: None (occurrence: None)
  Receive Date: 20050624
  Receipt Date: 20050314
  Transmission Date: 20051028
  Serious: Yes (Other)
  Sender: FDA-Public Use
  Company Number: US-MERCK-0503USA02837

PATIENT
  Age: 59 Year
  Sex: Male
  Weight: 65 kg

DRUGS (4)
  1. VIOXX [Suspect]
     Indication: BACK PAIN
     Route: 048
     Dates: start: 19990101, end: 20040930
  2. VIOXX [Suspect]
     Indication: ARTHRITIS
     Route: 048
     Dates: start: 19990101, end: 20040930
  3. NAPROXEN SODIUM [Concomitant]
     Route: 065
     Dates: start: 20010101
  4. ASPIRIN [Concomitant]
     Route: 065
     Dates: start: 20010101

REACTIONS (5)
  - CARDIAC DISORDER [None]
  - FLUID RETENTION [None]
  - HYPERTENSION [None]
  - MYOCARDIAL INFARCTION [None]
  - SWELLING [None]
